FAERS Safety Report 13342273 (Version 1)
Quarter: 2017Q1

REPORT INFORMATION
  Report Type: Spontaneous
  Country: US (occurrence: US)
  Receive Date: 20170316
  Receipt Date: 20170316
  Transmission Date: 20170428
  Serious: Yes (Other)
  Sender: FDA-Public Use
  Company Number: None

PATIENT
  Age: 41 Year
  Sex: Female
  Weight: 93.07 kg

DRUGS (1)
  1. BUPROPRION HCL XL 150 MG [Suspect]
     Active Substance: BUPROPION HYDROCHLORIDE
     Indication: MAJOR DEPRESSION
     Route: 048
     Dates: end: 201603

REACTIONS (8)
  - Suicidal ideation [None]
  - Aphasia [None]
  - Product substitution issue [None]
  - Agitation [None]
  - Cognitive disorder [None]
  - Confusional state [None]
  - Depression [None]
  - Memory impairment [None]

NARRATIVE: CASE EVENT DATE: 20160225
